FAERS Safety Report 8301672-1 (Version None)
Quarter: 2012Q2

REPORT INFORMATION
  Report Type: 
  Country: None (occurrence: None)
  Receive Date: 20120420
  Receipt Date: 20120414
  Transmission Date: 20120825
  Serious: Yes (Other)
  Sender: FDA-Public Use
  Company Number: US-BAYER-2012-000040

PATIENT
  Age: 46 Year
  Sex: Female
  Weight: 122.45 kg

DRUGS (9)
  1. DROSPIRENONE AND ETHINYL ESTRADIOL [Suspect]
     Dates: start: 20090201, end: 20090601
  2. DYAZIDE [Concomitant]
     Indication: OEDEMA PERIPHERAL
     Dosage: 37.5-25MG/ DAILY
  3. KEFLEX [Concomitant]
     Indication: OTITIS MEDIA
     Dosage: 500 MG/ EVERY 6 HOURS
  4. NOVACLOX [Concomitant]
  5. TYLENOL (CAPLET) [Concomitant]
     Indication: PAIN
     Dosage: UNK UNK, PRN
  6. AMOXIL [Concomitant]
     Indication: OTITIS MEDIA
     Dosage: 875 MG/ TWICE A DAY
  7. VICODIN [Concomitant]
     Indication: PAIN
     Dosage: 5-500MG/AS NEEDED
  8. YAZ [Suspect]
     Dates: start: 20080901, end: 20090101
  9. MOTRIN [Concomitant]
     Indication: ARTHRALGIA
     Dosage: 800 MG/ AS NEEDED
     Route: 048

REACTIONS (4)
  - PAIN [None]
  - INJURY [None]
  - DEEP VEIN THROMBOSIS [None]
  - EMOTIONAL DISTRESS [None]
